FAERS Safety Report 15289555 (Version 2)
Quarter: 2018Q3

REPORT INFORMATION
  Report Type: Spontaneous
  Country: BR (occurrence: BR)
  Receive Date: 20180817
  Receipt Date: 20180823
  Transmission Date: 20181010
  Serious: Yes (Other)
  Sender: FDA-Public Use
  Company Number: BR-PFIZER INC-2018301470

PATIENT
  Age: 71 Year
  Sex: Female

DRUGS (4)
  1. FRONTAL SL [Suspect]
     Active Substance: ALPRAZOLAM
     Indication: PANIC DISORDER
     Dosage: UNK
  2. FRONTAL [Suspect]
     Active Substance: ALPRAZOLAM
     Dosage: UNK
  3. ALPRAZOLAM. [Suspect]
     Active Substance: ALPRAZOLAM
     Dosage: UNK
  4. LOSARTAN. [Concomitant]
     Active Substance: LOSARTAN
     Indication: HYPERTENSION
     Dosage: UNK

REACTIONS (6)
  - Corneal abrasion [Recovering/Resolving]
  - Eye pain [Recovering/Resolving]
  - Condition aggravated [Recovering/Resolving]
  - Eye infection viral [Unknown]
  - Eye injury [Recovering/Resolving]
  - Dry eye [Recovering/Resolving]
